FAERS Safety Report 22251511 (Version 1)
Quarter: 2023Q2

REPORT INFORMATION
  Report Type: Spontaneous
  Country: GR (occurrence: GR)
  Receive Date: 20230425
  Receipt Date: 20230425
  Transmission Date: 20230721
  Serious: Yes (Hospitalization)
  Sender: FDA-Public Use
  Company Number: GR-PFIZER INC-202300163827

PATIENT
  Age: 20 Month
  Sex: Female

DRUGS (1)
  1. CLINDAMYCIN [Suspect]
     Active Substance: CLINDAMYCIN
     Indication: Ear infection
     Dosage: 120 MG (12 ML)

REACTIONS (6)
  - Burning sensation [Unknown]
  - Cough [Unknown]
  - Chest discomfort [Unknown]
  - Somnolence neonatal [Unknown]
  - Off label use [Unknown]
  - Product preparation issue [Unknown]
